FAERS Safety Report 8511191-5 (Version None)
Quarter: 2012Q3

REPORT INFORMATION
  Report Type: 
  Country: None (occurrence: None)
  Receive Date: 20120716
  Receipt Date: 20120705
  Transmission Date: 20120928
  Serious: Yes (Other)
  Sender: FDA-Public Use
  Company Number: BR-SANOFI-AVENTIS-2012SA001714

PATIENT
  Age: 33 Year
  Sex: Female
  Weight: 60 kg

DRUGS (3)
  1. ENOXAPARIN SODIUM [Suspect]
     Indication: THROMBOSIS
     Route: 058
     Dates: start: 20110801, end: 20120521
  2. ENOXAPARIN SODIUM [Suspect]
     Route: 058
     Dates: start: 20120101, end: 20120601
  3. SYNTHROID [Concomitant]
     Dosage: IN THE MORNING
     Route: 048
     Dates: start: 20020101

REACTIONS (5)
  - MATERNAL EXPOSURE DURING PREGNANCY [None]
  - THROMBOSIS [None]
  - ABORTION SPONTANEOUS [None]
  - EMBOLISM [None]
  - DEVICE ISSUE [None]
